FAERS Safety Report 19473909 (Version 1)
Quarter: 2021Q2

REPORT INFORMATION
  Report Type: Spontaneous
  Country: US (occurrence: US)
  Receive Date: 20210629
  Receipt Date: 20210629
  Transmission Date: 20210717
  Serious: No
  Sender: FDA-Public Use
  Company Number: US-GLAXOSMITHKLINE-2020251399

PATIENT
  Sex: Male
  Weight: 132 kg

DRUGS (12)
  1. CLARITIN [Suspect]
     Active Substance: LORATADINE
     Dosage: 10 MG [10 MG TABLET (CLARITIN) 1]
  2. CARDURA [Suspect]
     Active Substance: DOXAZOSIN MESYLATE
     Indication: NERVE INJURY
     Dosage: 8 MG [8 MG TABLET 1X]
  3. NEURONTIN [Suspect]
     Active Substance: GABAPENTIN
     Indication: NERVE INJURY
     Dosage: 600 MG [600 MG TABLET, 2X]
  4. ADVIL [Suspect]
     Active Substance: IBUPROFEN
     Indication: NERVE INJURY
     Dosage: 800 MG [800 MG TABLET, 3X]
  5. PATADAY [Suspect]
     Active Substance: OLOPATADINE HYDROCHLORIDE
     Indication: NERVE INJURY
     Dosage: UNK
  6. MOTRIN [Suspect]
     Active Substance: IBUPROFEN
     Indication: NERVE INJURY
     Dosage: 800 MG [800 MG TABLET, 3X ]
  7. ZYLOPRIM [Suspect]
     Active Substance: ALLOPURINOL
     Indication: NERVE INJURY
     Dosage: 100 MG [100 MG TABLET (ZYLOPRIM) 2X]
  8. FLONASE [Suspect]
     Active Substance: FLUTICASONE PROPIONATE
     Indication: NERVE INJURY
     Dosage: UNK [50 MCG/ACT]
  9. ULTRAM [Suspect]
     Active Substance: TRAMADOL HYDROCHLORIDE
     Indication: NERVE INJURY
     Dosage: 50 MG [50 MG TABLET (ULTRAM) 4X]
  10. OXYCONTIN [Suspect]
     Active Substance: OXYCODONE HYDROCHLORIDE
     Indication: NERVE INJURY
     Dosage: 30 MG [30 MG T12A EXTENDED RELEASE TABLET (OXYCONTIN) 2X]
  11. ELAVIL [Suspect]
     Active Substance: AMITRIPTYLINE HYDROCHLORIDE
     Indication: NERVE INJURY
     Dosage: 50 MG [50 MG TABLET (ELAVIL) 1X]
  12. ZANAFLEX [Suspect]
     Active Substance: TIZANIDINE HYDROCHLORIDE
     Indication: NERVE INJURY
     Dosage: 4 MG [4 MG TABLET (ZANAFLEX) 2X]

REACTIONS (2)
  - Off label use [Unknown]
  - Product use in unapproved indication [Unknown]
